FAERS Safety Report 10237981 (Version 1)
Quarter: 2014Q2

REPORT INFORMATION
  Report Type: Spontaneous
  Country: US (occurrence: US)
  Receive Date: 20140616
  Receipt Date: 20140616
  Transmission Date: 20141212
  Serious: No
  Sender: FDA-Public Use
  Company Number: US-BIOGENIDEC-2014BI052614

PATIENT
  Age: 65 Year
  Sex: Female

DRUGS (1)
  1. TECFIDERA [Suspect]
     Indication: MULTIPLE SCLEROSIS
     Route: 048
     Dates: start: 201305

REACTIONS (10)
  - Balance disorder [Not Recovered/Not Resolved]
  - Haematoma [Not Recovered/Not Resolved]
  - Periorbital contusion [Recovered/Resolved]
  - Contusion [Not Recovered/Not Resolved]
  - Coordination abnormal [Not Recovered/Not Resolved]
  - Mouth haemorrhage [Recovered/Resolved]
  - Lip injury [Unknown]
  - Peripheral swelling [Not Recovered/Not Resolved]
  - Fall [Unknown]
  - Hyperaesthesia [Not Recovered/Not Resolved]
